FAERS Safety Report 10183183 (Version 1)
Quarter: 2014Q2

REPORT INFORMATION
  Report Type: Spontaneous
  Country: US (occurrence: US)
  Receive Date: 20140520
  Receipt Date: 20140520
  Transmission Date: 20141212
  Serious: Yes (Hospitalization)
  Sender: FDA-Public Use
  Company Number: US-BAYER-2014-073614

PATIENT
  Age: 23 Year
  Sex: Female
  Weight: 56.69 kg

DRUGS (6)
  1. YAZ [Suspect]
  2. KEFLEX [Concomitant]
     Dosage: UNK
     Dates: start: 20030217
  3. DIAZEPAM [Concomitant]
     Dosage: UNK
     Dates: start: 20030217
  4. DEMEROL [Concomitant]
     Dosage: UNK
     Dates: start: 20030217
  5. PHENERGAN [Concomitant]
     Dosage: UNK
     Dates: start: 20030217
  6. COLACE [Concomitant]
     Dosage: UNK
     Dates: start: 20030217

REACTIONS (1)
  - Thrombophlebitis superficial [None]
